FAERS Safety Report 20143602 (Version 2)
Quarter: 2022Q1

REPORT INFORMATION
  Report Type: Report from Study
  Country: GB (occurrence: GB)
  Receive Date: 20211203
  Receipt Date: 20220218
  Transmission Date: 20220424
  Serious: Yes (Death, Hospitalization, Other)
  Sender: FDA-Public Use
  Company Number: GB-BRISTOL-MYERS SQUIBB COMPANY-BMS-2021-096163

PATIENT
  Age: 15 Year
  Sex: Female

DRUGS (7)
  1. NIVOLUMAB [Suspect]
     Active Substance: NIVOLUMAB
     Indication: Glioblastoma
     Dosage: 130 MG EVERY 2 WEEKS (3 MG/KG) IN LONG TERM STEVAGE NOTES: I CAN GET IT ABSOLUTELY NEEDED (40 MG/ML
     Route: 065
     Dates: start: 20210809, end: 20210809
  2. NIVOLUMAB [Suspect]
     Active Substance: NIVOLUMAB
     Indication: Hereditary non-polyposis colorectal cancer syndrome
  3. LEVETIRACETAM [Concomitant]
     Active Substance: LEVETIRACETAM
     Indication: Seizure
     Dosage: 1500 MILLIGRAM, BID
     Route: 048
     Dates: start: 20200922
  4. CYCLIZINE [Concomitant]
     Active Substance: CYCLIZINE
     Indication: Nausea
     Dosage: 500 MG TDS PRN
     Route: 048
     Dates: start: 20210728
  5. ONDANSETRON HYDROCHLORIDE [Concomitant]
     Active Substance: ONDANSETRON HYDROCHLORIDE
     Indication: Nausea
     Dosage: 8 MILLIGRAM, TDS PRN
     Route: 048
     Dates: start: 20200928
  6. LANSOPRAZOLE [Concomitant]
     Active Substance: LANSOPRAZOLE
     Indication: Gastritis
     Dosage: 30 MILLIGRAM, QD
     Route: 048
     Dates: start: 20210728
  7. COTRIMOXAZOLE [Concomitant]
     Active Substance: SULFAMETHOXAZOLE\TRIMETHOPRIM
     Indication: Prophylaxis
     Dosage: 480 MG BD SAT/SUN
     Route: 048
     Dates: start: 20201028

REACTIONS (2)
  - Malignant neoplasm progression [Fatal]
  - Hydrocephalus [Fatal]

NARRATIVE: CASE EVENT DATE: 20210812
